FAERS Safety Report 8189236-4 (Version None)
Quarter: 2012Q1

REPORT INFORMATION
  Report Type: 
  Country: None (occurrence: None)
  Receive Date: 20120307
  Receipt Date: 20120224
  Transmission Date: 20120608
  Serious: Yes (Death, Life-Threatening, Other)
  Sender: FDA-Public Use
  Company Number: BE-CELGENEUS-013-21880-12021663

PATIENT
  Sex: Female
  Weight: 80 kg

DRUGS (11)
  1. FUROSEMIDE [Concomitant]
     Indication: CAPILLARY LEAK SYNDROME
     Dosage: 125 MILLIGRAM
     Route: 041
     Dates: start: 20120203
  2. CEFTAZIDIME [Concomitant]
     Indication: PNEUMONIA
     Dosage: 2 GRAM
     Route: 041
     Dates: start: 20120207
  3. REVLIMID [Suspect]
     Indication: ACUTE MYELOID LEUKAEMIA
     Dosage: 15 MILLIGRAM
     Route: 048
     Dates: start: 20120123
  4. ENOXAPARIN [Concomitant]
     Indication: THROMBOSIS PROPHYLAXIS
     Dosage: 40 MILLIGRAM
     Route: 058
     Dates: start: 20120123
  5. DAUNORUBICIN HCL [Suspect]
     Indication: ACUTE MYELOID LEUKAEMIA
     Dosage: 83.7 MILLIGRAM
     Route: 041
     Dates: start: 20120123
  6. VANCOMYCIN [Concomitant]
     Indication: PNEUMONIA
     Dosage: 500 MILLIGRAM
     Route: 041
     Dates: start: 20120127
  7. CEFTAZIDIME [Concomitant]
  8. POTASSIUM CARBONATE [Concomitant]
     Indication: CAPILLARY LEAK SYNDROME
     Dosage: 10 MILLIGRAM
     Route: 041
     Dates: start: 20120206
  9. CYTARABINE [Suspect]
     Indication: ACUTE MYELOID LEUKAEMIA
     Dosage: 372 MILLIGRAM
     Route: 041
     Dates: start: 20120123
  10. CASPOFUNGIN ACETATE [Concomitant]
     Indication: PNEUMONIA
     Dosage: 50 MILLIGRAM
     Route: 041
     Dates: start: 20120205
  11. RANITIDINE [Concomitant]
     Indication: PROPHYLAXIS
     Dosage: 50 MILLIGRAM
     Route: 041
     Dates: start: 20120123

REACTIONS (5)
  - RESPIRATORY FAILURE [None]
  - CEREBROVASCULAR ACCIDENT [None]
  - PLEURAL EFFUSION [None]
  - PNEUMONIA [None]
  - LOWER GASTROINTESTINAL HAEMORRHAGE [None]
